FAERS Safety Report 8909714 (Version 1)
Quarter: 2012Q4

REPORT INFORMATION
  Report Type: 
  Country: BR (occurrence: BR)
  Receive Date: 20121115
  Receipt Date: 20121115
  Transmission Date: 20130627
  Serious: Yes (Other)
  Sender: FDA-Public Use
  Company Number: BR-VERTEX PHARMACEUTICAL INC.-2012-024498

PATIENT
  Sex: Female

DRUGS (3)
  1. INCIVO [Suspect]
     Indication: CHRONIC HEPATITIS C
     Dosage: 6 DF, qd
     Route: 048
     Dates: start: 201207, end: 201209
  2. RIBAVIRIN [Concomitant]
     Indication: HEPATITIS C
     Dosage: Dosage Form: Unknown
     Route: 065
  3. PEGYLATED INTERFERON [Concomitant]
     Dosage: Dosage Form: Unknown
     Route: 065

REACTIONS (2)
  - Myocardial infarction [Unknown]
  - Anaemia [Recovered/Resolved]
